FAERS Safety Report 22614538 (Version 1)
Quarter: 2023Q2

REPORT INFORMATION
  Report Type: Spontaneous
  Country: US (occurrence: US)
  Receive Date: 20230619
  Receipt Date: 20230619
  Transmission Date: 20230721
  Serious: Yes (Other)
  Sender: FDA-Public Use
  Company Number: US-009507513-2306USA007907

PATIENT
  Age: 85 Year
  Sex: Female

DRUGS (1)
  1. KEYTRUDA [Suspect]
     Active Substance: PEMBROLIZUMAB
     Dosage: UNK, EVERY 3 WEEKS
     Dates: end: 20230503

REACTIONS (1)
  - Hepatotoxicity [Unknown]

NARRATIVE: CASE EVENT DATE: 20230601
